FAERS Safety Report 9460783 (Version 2)
Quarter: 2013Q3

REPORT INFORMATION
  Report Type: Spontaneous
  Country: JP (occurrence: JP)
  Receive Date: 20130815
  Receipt Date: 20130904
  Transmission Date: 20140515
  Serious: Yes (Disabling)
  Sender: FDA-Public Use
  Company Number: JP-GLAXOSMITHKLINE-B0915055A

PATIENT
  Age: 74 Year
  Sex: Female

DRUGS (11)
  1. ZEFIX 100 [Suspect]
     Indication: HEPATITIS B
     Dosage: 100MG PER DAY
     Route: 048
     Dates: start: 20010830, end: 20130520
  2. HEPSERA 10 [Suspect]
     Indication: HEPATITIS B
     Dosage: 10MG PER DAY
     Route: 048
     Dates: start: 20050228, end: 20130520
  3. LENDORMIN [Concomitant]
     Dosage: .25MG PER DAY
     Route: 048
  4. MOHRUS TAPE [Concomitant]
     Dosage: 20MG PER DAY
     Route: 062
  5. KERATINAMIN [Concomitant]
     Route: 061
  6. BIO-THREE [Concomitant]
  7. GASTER [Concomitant]
     Dosage: 10MG TWICE PER DAY
  8. DEPAS [Concomitant]
     Dosage: 1MG PER DAY
  9. URSO [Concomitant]
     Dosage: 50MG THREE TIMES PER DAY
  10. MUCOSTA [Concomitant]
     Dosage: 100MG THREE TIMES PER DAY
  11. RECALBON [Concomitant]
     Dosage: 1MG PER DAY

REACTIONS (2)
  - Myopathy [Not Recovered/Not Resolved]
  - Musculoskeletal disorder [Not Recovered/Not Resolved]
